FAERS Safety Report 7573547-7 (Version None)
Quarter: 2011Q2

REPORT INFORMATION
  Report Type: 
  Country: None (occurrence: None)
  Receive Date: 20110627
  Receipt Date: 20110614
  Transmission Date: 20111010
  Serious: Yes (Other)
  Sender: FDA-Public Use
  Company Number: PHHY2011US52788

PATIENT
  Sex: Female

DRUGS (5)
  1. TYLENOL-500 [Concomitant]
  2. FOSAMAX [Suspect]
  3. VITAMIN TAB [Concomitant]
  4. CALCIUM CARBONATE [Concomitant]
  5. RECLAST [Suspect]
     Dosage: 5 MG
     Route: 042
     Dates: start: 20110311

REACTIONS (1)
  - BILIARY CIRRHOSIS PRIMARY [None]
